FAERS Safety Report 9999159 (Version 1)
Quarter: 2014Q1

REPORT INFORMATION
  Report Type: Spontaneous
  Country: US (occurrence: None)
  Receive Date: 20140311
  Receipt Date: 20140311
  Transmission Date: 20141002
  Serious: Yes (Other)
  Sender: FDA-Public Use
  Company Number: None

PATIENT
  Age: 20 Year
  Sex: 0
  Weight: 61.24 kg

DRUGS (2)
  1. EFFEXOR [Suspect]
     Indication: GENERALISED ANXIETY DISORDER
     Dosage: TAKEN BY MOUTH
     Route: 048
  2. EFFEXOR [Suspect]
     Indication: POST-TRAUMATIC STRESS DISORDER
     Dosage: TAKEN BY MOUTH
     Route: 048

REACTIONS (1)
  - Muscle spasms [None]
